FAERS Safety Report 4575511-9 (Version None)
Quarter: 2005Q1

REPORT INFORMATION
  Report Type: 
  Country: None (occurrence: None)
  Receive Date: 20050131
  Receipt Date: 20050131
  Transmission Date: 20050727
  Serious: Yes (Hospitalization)
  Sender: FDA-Public Use
  Company Number: None

PATIENT
  Sex: Female
  Weight: 65.7716 kg

DRUGS (4)
  1. ZOLOFT [Suspect]
     Indication: DEPRESSION
     Dosage: 50MGX3  100X3  ORAL
     Route: 048
     Dates: start: 19950920, end: 19970409
  2. ZOLOFT [Suspect]
     Indication: OBSESSIVE-COMPULSIVE DISORDER
     Dosage: 50MGX3  100X3  ORAL
     Route: 048
     Dates: start: 19950920, end: 19970409
  3. ZOLOFT [Suspect]
     Indication: POST-TRAUMATIC STRESS DISORDER
     Dosage: 50MGX3  100X3  ORAL
     Route: 048
     Dates: start: 19950920, end: 19970409
  4. RISPERDAL [Suspect]
     Dosage: ORAL
     Route: 048
     Dates: start: 19950920, end: 19971231

REACTIONS (5)
  - INSOMNIA [None]
  - LOSS OF LIBIDO [None]
  - RESTLESSNESS [None]
  - SUICIDE ATTEMPT [None]
  - WEIGHT INCREASED [None]
